FAERS Safety Report 15811496 (Version 1)
Quarter: 2019Q1

REPORT INFORMATION
  Report Type: Spontaneous
  Country: JP (occurrence: JP)
  Receive Date: 20190111
  Receipt Date: 20190111
  Transmission Date: 20190417
  Serious: Yes (Hospitalization, Other)
  Sender: FDA-Public Use
  Company Number: JP-STRIDES ARCOLAB LIMITED-2019SP000390

PATIENT
  Sex: Male

DRUGS (2)
  1. CALCITRIOL. [Suspect]
     Active Substance: CALCITRIOL
     Indication: HYPERPARATHYROIDISM SECONDARY
  2. CALCITRIOL. [Suspect]
     Active Substance: CALCITRIOL
     Indication: HYPOCALCAEMIA
     Dosage: 0.5 ?G PER DAY
     Route: 042

REACTIONS (6)
  - Blood pressure decreased [Unknown]
  - Pruritus generalised [Recovered/Resolved]
  - Urticaria [Unknown]
  - Flushing [Unknown]
  - Abdominal pain [Recovered/Resolved]
  - Anaphylactic shock [Unknown]
